FAERS Safety Report 7981850-1 (Version None)
Quarter: 2011Q4

REPORT INFORMATION
  Report Type: 
  Country: None (occurrence: None)
  Receive Date: 20111215
  Receipt Date: 20111201
  Transmission Date: 20120403
  Serious: Yes (Hospitalization)
  Sender: FDA-Public Use
  Company Number: FR-PFIZER INC-K201100390

PATIENT
  Age: 79 Year
  Sex: Female

DRUGS (9)
  1. CRESTOR [Concomitant]
     Dosage: UNK
     Route: 065
  2. PIOGLITAZONE [Concomitant]
     Dosage: UNK
     Route: 065
  3. ACETAMINOPHEN [Concomitant]
     Dosage: UNK
     Route: 065
  4. MOTILIUM [Concomitant]
     Dosage: UNK
     Route: 065
  5. FRAGMIN [Concomitant]
     Dosage: UNK
     Route: 065
  6. ESOMEPRAZOLE [Concomitant]
     Dosage: UNK
     Route: 065
  7. METFORMIN [Concomitant]
     Dosage: UNK
     Route: 065
  8. RAMIPRIL [Suspect]
     Dosage: UNK
     Route: 048
     Dates: end: 20100426
  9. TRAMADOL HCL [Concomitant]
     Dosage: UNK
     Route: 065

REACTIONS (6)
  - DEHYDRATION [None]
  - VOMITING [None]
  - LACTIC ACIDOSIS [None]
  - RENAL FAILURE ACUTE [None]
  - HYPERKALAEMIA [None]
  - FAECES DISCOLOURED [None]
